FAERS Safety Report 9328837 (Version 1)
Quarter: 2013Q2

REPORT INFORMATION
  Report Type: Spontaneous
  Country: US (occurrence: US)
  Receive Date: 20130604
  Receipt Date: 20130604
  Transmission Date: 20140414
  Serious: No
  Sender: FDA-Public Use
  Company Number: US-ROXANE LABORATORIES, INC.-2013-RO-00912RO

PATIENT
  Sex: Female

DRUGS (14)
  1. PREDNISONE [Suspect]
  2. METOPROLOL [Suspect]
  3. LISINOPRIL [Suspect]
  4. METHOTREXATE [Suspect]
  5. FLEXERIL [Suspect]
  6. PERCOCET [Suspect]
  7. LANTUS [Suspect]
  8. NOVOLOG [Suspect]
  9. VITAMIN D [Suspect]
  10. ZESTRIL [Suspect]
  11. AMITRIPTYLINE [Suspect]
  12. PLAQUENIL [Suspect]
  13. LASIX [Suspect]
  14. POTASSIUM [Suspect]

REACTIONS (1)
  - Weight increased [Unknown]
